FAERS Safety Report 8622668 (Version 5)
Quarter: 2012Q4

REPORT INFORMATION
  Report Type: Report from Study
  Country: CA (occurrence: CA)
  Receive Date: 20120619
  Receipt Date: 20121009
  Transmission Date: 20130627
  Serious: Yes (Other)
  Sender: FDA-Public Use
  Company Number: CA-BRISTOL-MYERS SQUIBB COMPANY-16456543

PATIENT
  Age: 65 Year
  Sex: Female

DRUGS (12)
  1. ORENCIA FOR INJ [Suspect]
     Indication: RHEUMATOID ARTHRITIS
     Dosage: Last dose: 9Mar12,10May12,02Aug12,28Aug12,27Sep Inf 10
2B69530,2C80093,1L66305 SE2014
     Route: 042
     Dates: start: 20120210
  2. WARFARIN SODIUM [Suspect]
  3. ZOPICLONE [Concomitant]
  4. PREDNISONE [Concomitant]
  5. REPLAVITE [Concomitant]
  6. FOLIC ACID [Concomitant]
  7. SYNTHROID [Concomitant]
  8. METOPROLOL [Concomitant]
     Dosage: Dose reduced to 12.5mg
     Route: 048
  9. VITAMIN D [Concomitant]
  10. VITAMIN A [Concomitant]
  11. CALCIUM [Concomitant]
  12. VITAMIN B12 [Concomitant]

REACTIONS (14)
  - Thrombosis [Recovered/Resolved]
  - Infusion site swelling [Recovered/Resolved]
  - Infusion site pain [Recovered/Resolved]
  - Synovial cyst [Recovered/Resolved]
  - Fatigue [Recovered/Resolved]
  - Gastroenteritis viral [Recovered/Resolved]
  - Hypotension [Not Recovered/Not Resolved]
  - Decreased appetite [Recovered/Resolved]
  - Heart rate irregular [Not Recovered/Not Resolved]
  - Blood albumin decreased [Unknown]
  - International normalised ratio increased [Unknown]
  - Pain in extremity [Unknown]
  - Feeling hot [Unknown]
  - Thermal burn [Recovering/Resolving]
